FAERS Safety Report 8850166 (Version 1)
Quarter: 2012Q4

REPORT INFORMATION
  Report Type: Report from Study
  Country: US (occurrence: US)
  Receive Date: 20121019
  Receipt Date: 20121019
  Transmission Date: 20130627
  Serious: Yes (Hospitalization)
  Sender: FDA-Public Use
  Company Number: US-GLAXOSMITHKLINE-A0998037A

PATIENT
  Age: 76 Year
  Sex: Male
  Weight: 88 kg

DRUGS (19)
  1. PAZOPANIB [Suspect]
     Indication: SARCOMA
     Dosage: 800MG Per day
     Route: 048
  2. GEMCITABINE [Suspect]
     Indication: SARCOMA
     Dosage: 1000MGM2 Cyclic
     Route: 042
  3. ASPIRIN [Concomitant]
     Dosage: 81MG Per day
     Route: 048
  4. ATORVASTATIN [Concomitant]
     Dosage: 10MG At night
     Route: 048
  5. FLEXERIL [Concomitant]
     Dosage: 10MG As required
     Route: 048
  6. ENALAPRIL [Concomitant]
     Dosage: 10MG At night
     Route: 048
  7. DILAUDID [Concomitant]
     Dosage: 2MG As required
     Route: 048
  8. LANTUS [Concomitant]
     Dosage: 12UNIT In the morning
     Route: 058
  9. LORAZEPAM [Concomitant]
     Dosage: .5MG As required
     Route: 048
  10. OMEPRAZOLE [Concomitant]
     Dosage: 20MG Per day
     Route: 048
  11. MIRALAX [Concomitant]
     Dosage: 17G As required
     Route: 048
  12. PHENERGAN [Concomitant]
     Dosage: 12.5MG As required
     Route: 048
  13. SENNA [Concomitant]
     Dosage: 1TAB Twice per day
     Route: 048
  14. TESTOSTERONE [Concomitant]
     Dosage: 200MGML Every two weeks
     Route: 030
  15. PROCHLORPERAZINE [Concomitant]
     Dosage: 25MG As required
     Route: 054
  16. DENAGLIPTIN [Concomitant]
  17. ERGOCALCIFEROL [Concomitant]
  18. INSULIN LISPRO [Concomitant]
  19. MECLIZINE [Concomitant]
     Dosage: 1TAB As required
     Route: 048

REACTIONS (1)
  - Cellulitis [Unknown]
